FAERS Safety Report 12105866 (Version 5)
Quarter: 2016Q2

REPORT INFORMATION
  Report Type: Report from Study
  Country: US (occurrence: US)
  Receive Date: 20160223
  Receipt Date: 20160510
  Transmission Date: 20160815
  Serious: Yes (Other)
  Sender: FDA-Public Use
  Company Number: US-AMGEN-USASL2016020723

PATIENT
  Age: 63 Year
  Sex: Female

DRUGS (1)
  1. ENBREL [Suspect]
     Active Substance: ETANERCEPT
     Indication: RHEUMATOID ARTHRITIS
     Dosage: 50 MG, WEEKLY
     Route: 065
     Dates: start: 20160211

REACTIONS (12)
  - Vision blurred [Unknown]
  - Headache [Unknown]
  - Rash [Recovered/Resolved]
  - Dysgeusia [Unknown]
  - Injection site reaction [Unknown]
  - Oropharyngeal pain [Unknown]
  - Basedow^s disease [Not Recovered/Not Resolved]
  - Haemoglobin decreased [Unknown]
  - Injection site warmth [Recovered/Resolved]
  - Injection site swelling [Recovered/Resolved]
  - Pain [Not Recovered/Not Resolved]
  - Nasal congestion [Unknown]

NARRATIVE: CASE EVENT DATE: 2016
